FAERS Safety Report 18262514 (Version 4)
Quarter: 2020Q4

REPORT INFORMATION
  Report Type: Spontaneous
  Country: US (occurrence: US)
  Receive Date: 20200914
  Receipt Date: 20201217
  Transmission Date: 20210113
  Serious: Yes (Other)
  Sender: FDA-Public Use
  Company Number: US-JNJFOC-20200912746

PATIENT
  Sex: Male
  Weight: 111.23 kg

DRUGS (1)
  1. SIMPONI [Suspect]
     Active Substance: GOLIMUMAB
     Indication: RHEUMATOID ARTHRITIS
     Dosage: TAKING SINCE 3 YEARS?50.00 MG / 0.50 ML
     Route: 058
     Dates: start: 2017

REACTIONS (2)
  - Rheumatoid arthritis [Unknown]
  - Suspected product quality issue [Unknown]

NARRATIVE: CASE EVENT DATE: 20200820
